FAERS Safety Report 6345795-5 (Version None)
Quarter: 2009Q3

REPORT INFORMATION
  Report Type: 
  Country: None (occurrence: None)
  Receive Date: 20090909
  Receipt Date: 20090831
  Transmission Date: 20100115
  Serious: Yes (Hospitalization, Other)
  Sender: FDA-Public Use
  Company Number: US-ASTRAZENECA-2009SE10845

PATIENT
  Age: 56 Year
  Sex: Female

DRUGS (3)
  1. ARIMIDEX [Suspect]
     Indication: BREAST CANCER
     Route: 048
     Dates: start: 20040101
  2. TOPAMAX [Concomitant]
     Indication: MIGRAINE
  3. LIPITOR [Concomitant]
     Indication: BLOOD CHOLESTEROL

REACTIONS (5)
  - BLOOD CHOLESTEROL INCREASED [None]
  - BREAST CANCER METASTATIC [None]
  - HYPERTENSION [None]
  - MIGRAINE [None]
  - WRIST FRACTURE [None]
